FAERS Safety Report 8323101-4 (Version None)
Quarter: 2012Q2

REPORT INFORMATION
  Report Type: 
  Country: None (occurrence: None)
  Receive Date: 20120430
  Receipt Date: 20120419
  Transmission Date: 20120825
  Serious: Yes (Other)
  Sender: FDA-Public Use
  Company Number: JP-PFIZER INC-2011127469

PATIENT
  Age: 57 Year
  Sex: Male
  Weight: 58 kg

DRUGS (18)
  1. FLUOROURACIL [Suspect]
     Dosage: 3974 MG,ONCE IN 2 DAYS
     Route: 041
     Dates: start: 20100114, end: 20100114
  2. FLUOROURACIL [Suspect]
     Dosage: 496 MG, 1X/DAY
     Route: 040
  3. FLUOROURACIL [Suspect]
     Dosage: UNK
     Dates: start: 20100308, end: 20100308
  4. IRINOTECAN HCL [Suspect]
     Dosage: 198 MG,1X/DAY
     Route: 041
     Dates: start: 20100308, end: 20100308
  5. FLUOROURACIL [Suspect]
     Dosage: 662 MG,1X/DAY
     Route: 040
     Dates: start: 20091215, end: 20091215
  6. FLUOROURACIL [Suspect]
     Dosage: 3312 MG,ONCE IN 2 DAYS
     Route: 041
     Dates: start: 20100215, end: 20100215
  7. LEVOFOLINATE CALCIUM [Concomitant]
     Indication: COLORECTAL CANCER
     Dosage: 331 MG/BODY (205.6 MG/M2)
     Route: 041
     Dates: start: 20091215, end: 20100308
  8. JUZENTAIHOTO [Concomitant]
     Dosage: UNK
     Dates: start: 20100323, end: 20100330
  9. FLUOROURACIL [Suspect]
     Dosage: UNK
     Dates: start: 20100308, end: 20100308
  10. IRINOTECAN HCL [Suspect]
     Dosage: 198 MG,1X/DAY
     Route: 041
     Dates: start: 20100215, end: 20100215
  11. FLUOROURACIL [Suspect]
     Dosage: 662 MG, 1X/DAY
     Route: 040
     Dates: start: 20100114, end: 20100114
  12. ELENTAL [Concomitant]
     Dosage: UNK
     Dates: start: 20100323, end: 20100330
  13. IRINOTECAN HCL [Suspect]
     Indication: COLORECTAL CANCER
     Dosage: 248 MG,1X/DAY
     Route: 041
     Dates: start: 20091215, end: 20091215
  14. FLUOROURACIL [Suspect]
     Dosage: 496 MG, 1X/DAY
     Route: 040
     Dates: start: 20100215, end: 20100215
  15. AVASTIN [Concomitant]
     Indication: COLORECTAL CANCER
     Dosage: 580 MG/BODY
     Route: 041
     Dates: start: 20091215, end: 20100308
  16. IRINOTECAN HCL [Suspect]
     Dosage: 248 MG,1X/DAY
     Route: 041
     Dates: start: 20100114, end: 20100114
  17. FLUOROURACIL [Suspect]
     Dosage: 3312 MG,ONCE IN 2DAYS
     Route: 041
  18. FLUOROURACIL [Suspect]
     Dosage: 3974 MG,ONCE IN 2 DAYS
     Route: 041
     Dates: start: 20091215, end: 20091215

REACTIONS (7)
  - STOMATITIS [None]
  - MALAISE [None]
  - NAUSEA [None]
  - HAEMOGLOBIN DECREASED [None]
  - DECREASED APPETITE [None]
  - NEUTROPENIA [None]
  - DIARRHOEA [None]
